FAERS Safety Report 15338319 (Version 1)
Quarter: 2018Q3

REPORT INFORMATION
  Report Type: Spontaneous
  Country: FR (occurrence: FR)
  Receive Date: 20180831
  Receipt Date: 20180831
  Transmission Date: 20181010
  Serious: Yes (Hospitalization)
  Sender: FDA-Public Use
  Company Number: FR-ASTRAZENECA-2018SF10070

PATIENT
  Age: 95 Year
  Sex: Male

DRUGS (2)
  1. NALOXEGOL [Suspect]
     Active Substance: NALOXEGOL
     Route: 048
     Dates: start: 201712
  2. NORMACOL [Concomitant]
     Active Substance: HERBALS\KARAYA GUM

REACTIONS (1)
  - Subileus [Unknown]

NARRATIVE: CASE EVENT DATE: 20180805
